FAERS Safety Report 6288950-5 (Version None)
Quarter: 2009Q3

REPORT INFORMATION
  Report Type: 
  Country: None (occurrence: None)
  Receive Date: 20090729
  Receipt Date: 20090720
  Transmission Date: 20100115
  Serious: Yes (Other)
  Sender: FDA-Public Use
  Company Number: FI-SANOFI-SYNTHELABO-F01200900691

PATIENT
  Sex: Male

DRUGS (5)
  1. NAPROMETIN [Concomitant]
  2. ORUDIS [Concomitant]
  3. SALAZOPYRIN [Concomitant]
  4. CAPECITABINE [Suspect]
     Route: 048
     Dates: start: 20080808, end: 20081203
  5. OXALIPLATIN [Suspect]
     Indication: RECTAL CANCER
     Route: 042
     Dates: start: 20081203, end: 20081203

REACTIONS (1)
  - CORONARY ARTERY DISEASE [None]
